FAERS Safety Report 14048029 (Version 1)
Quarter: 2017Q4

REPORT INFORMATION
  Report Type: Spontaneous
  Country: US (occurrence: US)
  Receive Date: 20171005
  Receipt Date: 20171005
  Transmission Date: 20180321
  Serious: Yes (Other)
  Sender: FDA-Public Use
  Company Number: None

PATIENT
  Sex: Female
  Weight: 69.75 kg

DRUGS (27)
  1. LYRICA [Concomitant]
     Active Substance: PREGABALIN
  2. SUCRALAFATE [Concomitant]
  3. CLARINEX-D [Concomitant]
     Active Substance: DESLORATADINE\PSEUDOEPHEDRINE SULFATE
  4. VALACYCLOVIR [Concomitant]
     Active Substance: VALACYCLOVIR HYDROCHLORIDE
  5. VOLTAREN [Concomitant]
     Active Substance: DICLOFENAC SODIUM
  6. IBRANCE [Suspect]
     Active Substance: PALBOCICLIB
     Indication: BREAST CANCER
     Route: 048
     Dates: start: 20170410
  7. PRAVASTATIN. [Concomitant]
     Active Substance: PRAVASTATIN
  8. CYMBALTA [Concomitant]
     Active Substance: DULOXETINE HYDROCHLORIDE
  9. DEXTROAMPHETAMINE SULFATE, ZINC [Concomitant]
  10. ASPIRIN. [Concomitant]
     Active Substance: ASPIRIN
  11. MYRBETRIQ [Concomitant]
     Active Substance: MIRABEGRON
  12. CANDESARTAN CILEXTIL [Concomitant]
     Active Substance: CANDESARTAN CILEXETIL
  13. FIORICET/CODEINE [Concomitant]
  14. PERCOCET [Concomitant]
     Active Substance: ACETAMINOPHEN\OXYCODONE HYDROCHLORIDE
  15. BIOFREEZE [Concomitant]
     Active Substance: MENTHOL
  16. ZINC MAGNESIUM [Concomitant]
  17. LECITHIN [Concomitant]
     Active Substance: LECITHIN
  18. FOLIC ACID. [Concomitant]
     Active Substance: FOLIC ACID
  19. FLUCONAZOLE. [Concomitant]
     Active Substance: FLUCONAZOLE
  20. CIPROFLOXACIN. [Concomitant]
     Active Substance: CIPROFLOXACIN
  21. MODAFINIL. [Concomitant]
     Active Substance: MODAFINIL
  22. TIMOLOL MALEATE. [Concomitant]
     Active Substance: TIMOLOL MALEATE
  23. FERROUS GLUCONATE [Concomitant]
     Active Substance: FERROUS GLUCONATE
  24. XALATAN [Concomitant]
     Active Substance: LATANOPROST
  25. LIDOCAINE. [Concomitant]
     Active Substance: LIDOCAINE
  26. CALCIUM + D [Concomitant]
     Active Substance: CALCIUM\VITAMIN D
  27. MAGNESIUM CITRATE. [Concomitant]
     Active Substance: MAGNESIUM CITRATE

REACTIONS (1)
  - Fatigue [None]
